FAERS Safety Report 16077472 (Version 2)
Quarter: 2019Q2

REPORT INFORMATION
  Report Type: Spontaneous
  Country: US (occurrence: US)
  Receive Date: 20190315
  Receipt Date: 20190627
  Transmission Date: 20190711
  Serious: No
  Sender: FDA-Public Use
  Company Number: US-PFIZER INC-2019106500

PATIENT
  Age: 59 Year
  Sex: Female

DRUGS (2)
  1. XELJANZ XR [Suspect]
     Active Substance: TOFACITINIB CITRATE
     Indication: RHEUMATOID ARTHRITIS
     Dosage: 11 MG, 1X/DAY
     Route: 048
     Dates: start: 201902
  2. XELJANZ XR [Suspect]
     Active Substance: TOFACITINIB CITRATE
     Dosage: UNK, 2X/DAY [SHE WAS SPLITTING THE DOSE IN 5.5 MG AND TAKING BID]

REACTIONS (8)
  - Blood pressure increased [Unknown]
  - Chest discomfort [Unknown]
  - Thinking abnormal [Unknown]
  - Palpitations [Not Recovered/Not Resolved]
  - Night sweats [Not Recovered/Not Resolved]
  - Intentional product misuse [Unknown]
  - Fatigue [Unknown]
  - Feeling abnormal [Unknown]

NARRATIVE: CASE EVENT DATE: 2019
